FAERS Safety Report 8814473 (Version 1)
Quarter: 2012Q4

REPORT INFORMATION
  Report Type: Spontaneous
  Country: US (occurrence: None)
  Receive Date: 20120927
  Receipt Date: 20120927
  Transmission Date: 20130627
  Serious: No
  Sender: FDA-Public Use
  Company Number: None

PATIENT
  Sex: Female

DRUGS (1)
  1. HUMIRA [Suspect]
     Indication: RHEUMATOID  ARTHRITIS
     Dosage: 40mg Qweek Subcutaneous
     Route: 058
     Dates: start: 20120321

REACTIONS (4)
  - Burning sensation [None]
  - Erythema [None]
  - Pruritus [None]
  - Burns second degree [None]
